FAERS Safety Report 14745417 (Version 1)
Quarter: 2018Q2

REPORT INFORMATION
  Report Type: Spontaneous
  Country: US (occurrence: US)
  Receive Date: 20180411
  Receipt Date: 20180411
  Transmission Date: 20180711
  Serious: Yes (Other)
  Sender: FDA-Public Use
  Company Number: US-BAYER-COV-30011

PATIENT
  Age: 70 Year
  Sex: Female

DRUGS (1)
  1. ACETYLSALICYLIC ACID({=100 MG) [Suspect]
     Active Substance: ASPIRIN
     Indication: VISUAL IMPAIRMENT
     Dosage: DOSE: 100 MG ORAL
     Route: 048

REACTIONS (1)
  - Diverticulitis [Unknown]
